FAERS Safety Report 8836663 (Version 2)
Quarter: 2012Q4

REPORT INFORMATION
  Report Type: Spontaneous
  Country: GB (occurrence: None)
  Receive Date: 20121010
  Receipt Date: 20121022
  Transmission Date: 20130627
  Serious: Yes (Hospitalization)
  Sender: FDA-Public Use
  Company Number: 1431876

PATIENT
  Age: 47 Year
  Sex: Female
  Weight: 30.39 kg

DRUGS (12)
  1. OXALIPLATIN [Suspect]
     Indication: COLON CARCINOMA
     Dosage: 3, week, (not otherwise specified)
     Route: 042
     Dates: start: 20061214
  2. ASPIRIN [Suspect]
     Indication: DRUG USE FOR UNKNOWN INDICATION
     Dates: end: 20070116
  3. BEVACIZUMAB [Suspect]
     Indication: DRUG USE FOR UNKNOWN INDICATION
     Dosage: 3, week, (not otherwise specified)
     Route: 042
     Dates: start: 20061214
  4. CAPECITABINE [Suspect]
     Indication: COLON CARCINOMA
     Dosage: 3, week, (not otherwise specified)
     Route: 048
     Dates: start: 20061214, end: 20070108
  5. CAPECITABINE [Suspect]
     Indication: COLON CARCINOMA
     Route: 048
     Dates: end: 20070130
  6. CAPECITABINE [Suspect]
     Indication: COLON CARCINOMA
     Route: 048
     Dates: start: 20070201
  7. ERBITUX [Suspect]
     Indication: DRUG USE FOR UNKNOWN INDICATION
  8. METOCLOPRAMIDE [Concomitant]
  9. LOPERAMIDE [Concomitant]
  10. LASOPRAZOLE [Concomitant]
  11. LORAZEPAM [Concomitant]
  12. DEXAMETHASONE [Concomitant]

REACTIONS (5)
  - Faeces discoloured [None]
  - Vomiting [None]
  - Throat tightness [None]
  - Blood potassium decreased [None]
  - Blood creatinine decreased [None]
